FAERS Safety Report 23858921 (Version 1)
Quarter: 2024Q2

REPORT INFORMATION
  Report Type: Spontaneous
  Country: US (occurrence: None)
  Receive Date: 20240515
  Receipt Date: 20240515
  Transmission Date: 20240715
  Serious: Yes (Other)
  Sender: FDA-Public Use
  Company Number: 2024A108526

PATIENT
  Sex: Male

DRUGS (3)
  1. SYMBICORT [Suspect]
     Active Substance: BUDESONIDE\FORMOTEROL FUMARATE DIHYDRATE
     Dosage: 160 UNKNOWN
     Route: 055
  2. SPIRIVA [Concomitant]
     Active Substance: TIOTROPIUM BROMIDE MONOHYDRATE
  3. ALBUTEROL [Concomitant]
     Active Substance: ALBUTEROL

REACTIONS (9)
  - Colitis ulcerative [Unknown]
  - Blindness unilateral [Unknown]
  - Dementia Alzheimer^s type [Unknown]
  - Candida infection [Unknown]
  - Barrett^s oesophagus [Unknown]
  - Dyspnoea [Unknown]
  - Headache [Unknown]
  - Syncope [Unknown]
  - Inability to afford medication [Unknown]
